FAERS Safety Report 6846181-1 (Version None)
Quarter: 2010Q3

REPORT INFORMATION
  Report Type: 
  Country: None (occurrence: None)
  Receive Date: 20100715
  Receipt Date: 20070913
  Transmission Date: 20110219
  Serious: No
  Sender: FDA-Public Use
  Company Number: US-PFIZER INC-2007076921

PATIENT
  Age: 53 Year
  Sex: Female

DRUGS (9)
  1. CHANTIX [Suspect]
     Indication: SMOKING CESSATION THERAPY
     Route: 048
     Dates: start: 20070801
  2. XANAX [Concomitant]
  3. VALTREX [Concomitant]
  4. FLUDROCORTISONE [Concomitant]
  5. CORDARONE [Concomitant]
  6. ALBUTEROL [Concomitant]
  7. SPIRIVA [Concomitant]
  8. WARFARIN SODIUM [Concomitant]
  9. ADVAIR DISKUS 100/50 [Concomitant]

REACTIONS (5)
  - ABDOMINAL DISTENSION [None]
  - DISCOMFORT [None]
  - FEELING ABNORMAL [None]
  - FLATULENCE [None]
  - PAIN [None]
